FAERS Safety Report 7580033-7 (Version None)
Quarter: 2011Q2

REPORT INFORMATION
  Report Type: 
  Country: None (occurrence: None)
  Receive Date: 20110629
  Receipt Date: 20110621
  Transmission Date: 20111010
  Serious: Yes (Hospitalization)
  Sender: FDA-Public Use
  Company Number: JP-JNJFOC-20110610943

PATIENT
  Age: 79 Year
  Sex: Female

DRUGS (11)
  1. FUROSEMIDE [Concomitant]
     Route: 048
  2. BROTIZOLAM [Concomitant]
     Route: 048
  3. CARVEDILOL [Concomitant]
     Route: 048
  4. GALANTAMINE HYDROBROMIDE [Suspect]
     Indication: PRODUCT USED FOR UNKNOWN INDICATION
     Route: 048
     Dates: start: 20110602, end: 20110615
  5. ENALAPRIL MALEATE [Concomitant]
     Route: 048
  6. LANSOPRAZOLE [Concomitant]
     Route: 048
  7. VERAPAMIL HCL [Concomitant]
     Route: 048
  8. ALDACTONE [Concomitant]
     Route: 048
  9. HEAVY MAGNESIUM OXIDE [Concomitant]
     Route: 048
  10. DONEPEZIL HYDROCHLORIDE [Suspect]
     Indication: PRODUCT USED FOR UNKNOWN INDICATION
     Route: 065
  11. NEUROTROPIN [Concomitant]
     Route: 048

REACTIONS (1)
  - TACHYCARDIA [None]
